FAERS Safety Report 23884473 (Version 1)
Quarter: 2024Q2

REPORT INFORMATION
  Report Type: Spontaneous
  Country: US (occurrence: None)
  Receive Date: 20240522
  Receipt Date: 20240522
  Transmission Date: 20240716
  Serious: Yes (Hospitalization)
  Sender: FDA-Public Use
  Company Number: None

PATIENT
  Sex: Female

DRUGS (2)
  1. ICATIBANT ACETATE [Suspect]
     Active Substance: ICATIBANT ACETATE
     Indication: Complement deficiency disease
     Dosage: FREQUENCY : AS NEEDED;?
     Route: 058
     Dates: start: 202210
  2. TAKHZYRO [Concomitant]

REACTIONS (6)
  - Dyspnoea [None]
  - Weight decreased [None]
  - Lip swelling [None]
  - Swelling face [None]
  - Pharyngeal swelling [None]
  - Abdominal distension [None]
